FAERS Safety Report 25242854 (Version 1)
Quarter: 2025Q2

REPORT INFORMATION
  Report Type: Report from Study
  Country: US (occurrence: US)
  Receive Date: 20250427
  Receipt Date: 20250427
  Transmission Date: 20250717
  Serious: Yes (Other)
  Sender: ALEXION PHARMACEUTICALS
  Company Number: US-ALXN-A202302877

PATIENT
  Age: 78 Year

DRUGS (1)
  1. STRENSIQ [Suspect]
     Active Substance: ASFOTASE ALFA
     Indication: Phosphorus metabolism disorder
     Dosage: 68 MILLIGRAM, SIX TIMES/WEEK
     Route: 065

REACTIONS (2)
  - Breast cancer [Unknown]
  - Fall [Unknown]
